FAERS Safety Report 7392579-5 (Version None)
Quarter: 2011Q2

REPORT INFORMATION
  Report Type: 
  Country: None (occurrence: None)
  Receive Date: 20110404
  Receipt Date: 20110328
  Transmission Date: 20111010
  Serious: No
  Sender: FDA-Public Use
  Company Number: US-TEVA-273883USA

PATIENT
  Sex: Female

DRUGS (1)
  1. ALBUTEROL SULFATE AUTOHALER [Suspect]
     Route: 055
     Dates: start: 20110325, end: 20110325

REACTIONS (5)
  - VERTIGO [None]
  - HEART RATE INCREASED [None]
  - GAIT DISTURBANCE [None]
  - HYPERSENSITIVITY [None]
  - DIZZINESS [None]
